FAERS Safety Report 5421461-5 (Version None)
Quarter: 2007Q3

REPORT INFORMATION
  Report Type: 
  Country: None (occurrence: None)
  Receive Date: 20070817
  Receipt Date: 20070807
  Transmission Date: 20080115
  Serious: Yes (Hospitalization, Other)
  Sender: FDA-Public Use
  Company Number: 236591K07USA

PATIENT
  Age: 47 Year
  Sex: Female

DRUGS (5)
  1. REBIF [Suspect]
     Indication: MULTIPLE SCLEROSIS
     Dosage: 44 MCG, 3 IN 1 WEEKS, SUBCUTANEOUS
     Route: 058
     Dates: start: 20061020
  2. LISINOPRIL [Concomitant]
  3. OMEPRAZOEL  (OMEPRAZOLE) [Concomitant]
  4. OVCON-50 (NORMEL [Concomitant]
  5. TYLENOL (COTYLENOL) [Concomitant]

REACTIONS (4)
  - ABDOMINAL PAIN UPPER [None]
  - ALANINE AMINOTRANSFERASE INCREASED [None]
  - ASPARTATE AMINOTRANSFERASE INCREASED [None]
  - INFECTION [None]
